FAERS Safety Report 7069900-0 (Version None)
Quarter: 2010Q4

REPORT INFORMATION
  Report Type: 
  Country: None (occurrence: None)
  Receive Date: 20101028
  Receipt Date: 20100817
  Transmission Date: 20110411
  Serious: No
  Sender: FDA-Public Use
  Company Number: US-WYE-H16235810

PATIENT
  Age: 63 Year
  Sex: Female
  Weight: 105.33 kg

DRUGS (6)
  1. ADVIL COLD AND SINUS [Suspect]
     Indication: OROPHARYNGEAL PAIN
     Route: 048
     Dates: start: 20100628, end: 20100629
  2. ADVIL COLD AND SINUS [Suspect]
     Indication: EAR PAIN
  3. ADVIL COLD AND SINUS [Suspect]
     Indication: EYE PRURITUS
  4. CALCIUM [Concomitant]
  5. ASCORBIC ACID [Concomitant]
  6. MULTI-VITAMINS [Concomitant]

REACTIONS (6)
  - DIZZINESS [None]
  - HOT FLUSH [None]
  - MALAISE [None]
  - NAUSEA [None]
  - RASH [None]
  - URTICARIA [None]
